FAERS Safety Report 6500296-6 (Version None)
Quarter: 2009Q4

REPORT INFORMATION
  Report Type: 
  Country: None (occurrence: None)
  Receive Date: 20091216
  Receipt Date: 20091207
  Transmission Date: 20100525
  Serious: Yes (Hospitalization)
  Sender: FDA-Public Use
  Company Number: JP-ASTRAZENECA-2009SE23460

PATIENT
  Age: 28775 Day
  Sex: Female
  Weight: 51 kg

DRUGS (5)
  1. IRESSA [Suspect]
     Indication: LUNG NEOPLASM MALIGNANT
     Route: 048
     Dates: start: 20090409
  2. HERBESSER [Concomitant]
     Indication: HYPERTENSION
     Dosage: STARTED BEFORE 2006.
     Route: 048
  3. FLUITRAN [Concomitant]
     Indication: HYPERTENSION
     Dosage: STARTED BEFORE 2006.
     Route: 048
  4. BLOPRESS [Concomitant]
     Indication: HYPERTENSION
     Dosage: STARTED BEFORE 2006.
     Route: 048
  5. MAGNESIUM OXIDE [Concomitant]
     Indication: CONSTIPATION
     Route: 048
     Dates: start: 20090414

REACTIONS (1)
  - ANAEMIA HAEMOLYTIC AUTOIMMUNE [None]
